FAERS Safety Report 25660472 (Version 2)
Quarter: 2025Q3

REPORT INFORMATION
  Report Type: Spontaneous
  Country: EU (occurrence: EU)
  Receive Date: 20250808
  Receipt Date: 20250819
  Transmission Date: 20251021
  Serious: No
  Sender: SANOFI AVENTIS
  Company Number: EU-SUN PHARMACEUTICAL INDUSTRIES LTD-2025R1-519412

PATIENT
  Age: 77 Year
  Sex: Male

DRUGS (8)
  1. TAMSULOSIN HYDROCHLORIDE [Interacting]
     Active Substance: TAMSULOSIN HYDROCHLORIDE
     Indication: Benign prostatic hyperplasia
  2. HYDROXYZINE [Interacting]
     Active Substance: HYDROXYZINE HYDROCHLORIDE
     Indication: Insomnia
     Dosage: 25 MG, HS
  3. DAPAGLIFLOZIN [Suspect]
     Active Substance: DAPAGLIFLOZIN
     Indication: Type 2 diabetes mellitus
  4. METFORMIN [Concomitant]
     Active Substance: METFORMIN HYDROCHLORIDE
     Indication: Type 2 diabetes mellitus
     Dosage: 1000 MG, QD
  5. RAMIPRIL [Concomitant]
     Active Substance: RAMIPRIL
     Indication: Cardiac failure
     Dosage: 5 MG, QD
  6. EPLERENONE [Concomitant]
     Active Substance: EPLERENONE
     Indication: Cardiac failure
     Dosage: 50 MG, QD
  7. BISOPROLOL [Concomitant]
     Active Substance: BISOPROLOL
     Indication: Cardiac failure
     Dosage: 2.5 MG, QD
  8. SITAGLIPTIN [Concomitant]
     Active Substance: SITAGLIPTIN
     Indication: Type 2 diabetes mellitus

REACTIONS (2)
  - Urinary tract infection [Unknown]
  - Drug interaction [Unknown]
